FAERS Safety Report 7801896-3 (Version None)
Quarter: 2011Q4

REPORT INFORMATION
  Report Type: 
  Country: None (occurrence: None)
  Receive Date: 20111007
  Receipt Date: 20110926
  Transmission Date: 20120403
  Serious: Yes (Other)
  Sender: FDA-Public Use
  Company Number: CA-ELI_LILLY_AND_COMPANY-CA201109007036

PATIENT
  Sex: Male

DRUGS (15)
  1. LOXAPINE [Concomitant]
  2. METHOTRIMEPRAZINE [Concomitant]
  3. ZYPREXA [Suspect]
     Dosage: 10 MG, QD
     Dates: start: 19980723
  4. FLUPENTHIXOL [Concomitant]
  5. LITHIUM [Concomitant]
  6. LORAZEPAM [Concomitant]
  7. ZYPREXA [Suspect]
     Dosage: 5 MG, QD
  8. DIVALPROEX SODIUM [Concomitant]
  9. ZYPREXA [Suspect]
     Dosage: 10 MG, EACH EVENING
  10. BENZTROPINE MESYLATE [Concomitant]
  11. ZYBAN [Concomitant]
  12. CLONAZEPAM [Concomitant]
  13. ZYPREXA [Suspect]
     Dosage: 7.5 MG, EACH EVENING
  14. ZOPICLONE [Concomitant]
  15. QUETIAPINE [Concomitant]

REACTIONS (9)
  - BLOOD CHOLESTEROL INCREASED [None]
  - MYOCARDIAL INFARCTION [None]
  - CEREBROVASCULAR ACCIDENT [None]
  - WEIGHT INCREASED [None]
  - TYPE 2 DIABETES MELLITUS [None]
  - CHEST PAIN [None]
  - DIABETIC KETOACIDOSIS [None]
  - BLOOD TRIGLYCERIDES INCREASED [None]
  - VISUAL ACUITY REDUCED [None]
